FAERS Safety Report 16815534 (Version 2)
Quarter: 2020Q4

REPORT INFORMATION
  Report Type: Spontaneous
  Country: US (occurrence: US)
  Receive Date: 20190917
  Receipt Date: 20201020
  Transmission Date: 20210113
  Serious: Yes (Other)
  Sender: FDA-Public Use
  Company Number: US-SUN PHARMACEUTICAL INDUSTRIES LTD-2019R1-220460

PATIENT
  Age: 68 Year
  Sex: Female

DRUGS (1)
  1. CLOZAPINE. [Suspect]
     Active Substance: CLOZAPINE
     Indication: SCHIZOPHRENIA
     Dosage: UNK
     Route: 065

REACTIONS (8)
  - Left ventricular dysfunction [Unknown]
  - Cardiac failure [Unknown]
  - Cardiogenic shock [Unknown]
  - Cardiotoxicity [Unknown]
  - Mental status changes [Unknown]
  - Respiratory failure [Unknown]
  - Pulmonary oedema [Unknown]
  - Mitral valve incompetence [Unknown]
